FAERS Safety Report 21962556 (Version 9)
Quarter: 2025Q3

REPORT INFORMATION
  Report Type: Report from Study
  Country: CA (occurrence: CA)
  Receive Date: 20230207
  Receipt Date: 20250919
  Transmission Date: 20251020
  Serious: Yes (Hospitalization, Other)
  Sender: TAKEDA
  Company Number: CA-TAKEDA-2023TUS012302

PATIENT
  Age: 61 Year
  Sex: Female

DRUGS (25)
  1. VEDOLIZUMAB [Suspect]
     Active Substance: VEDOLIZUMAB
     Indication: Crohn^s disease
  2. VEDOLIZUMAB [Suspect]
     Active Substance: VEDOLIZUMAB
     Dosage: 300 MILLIGRAM, Q4WEEKS
     Dates: start: 20210611
  3. VEDOLIZUMAB [Suspect]
     Active Substance: VEDOLIZUMAB
     Dosage: 300 MILLIGRAM, Q4WEEKS
  4. VEDOLIZUMAB [Suspect]
     Active Substance: VEDOLIZUMAB
     Dosage: 300 MILLIGRAM, Q4WEEKS
  5. VEDOLIZUMAB [Suspect]
     Active Substance: VEDOLIZUMAB
     Dosage: 300 MILLIGRAM, Q4WEEKS
  6. VEDOLIZUMAB [Suspect]
     Active Substance: VEDOLIZUMAB
     Dosage: 300 MILLIGRAM, Q4WEEKS
  7. VEDOLIZUMAB [Suspect]
     Active Substance: VEDOLIZUMAB
     Dosage: 300 MILLIGRAM, Q4WEEKS
  8. PANTOPRAZOLE SODIUM [Suspect]
     Active Substance: PANTOPRAZOLE SODIUM
     Indication: Crohn^s disease
  9. ATENOLOL [Concomitant]
     Active Substance: ATENOLOL
  10. DITROPAN [Concomitant]
     Active Substance: OXYBUTYNIN CHLORIDE
  11. LEVOTHYROXINE [Concomitant]
     Active Substance: LEVOTHYROXINE
  12. FENTANYL [Concomitant]
     Active Substance: FENTANYL
  13. LYRICA [Concomitant]
     Active Substance: PREGABALIN
  14. IMOVANE [Concomitant]
     Active Substance: ZOPICLONE
  15. MACROBID [Concomitant]
     Active Substance: NITROFURANTOIN\NITROFURANTOIN MONOHYDRATE
  16. TRENTAL [Concomitant]
     Active Substance: PENTOXIFYLLINE
  17. WARFARIN [Concomitant]
     Active Substance: WARFARIN
  18. Diazide [Concomitant]
  19. APIXABAN [Concomitant]
     Active Substance: APIXABAN
  20. PENTOXIFYLLINE [Concomitant]
     Active Substance: PENTOXIFYLLINE
  21. METOPROLOL [Concomitant]
     Active Substance: METOPROLOL
  22. BUSPIRONE [Concomitant]
     Active Substance: BUSPIRONE HYDROCHLORIDE
  23. AMILORIDE [Concomitant]
     Active Substance: AMILORIDE
  24. OXYBUTYNIN [Concomitant]
     Active Substance: OXYBUTYNIN
  25. DEXAMETHASONE [Concomitant]
     Active Substance: DEXAMETHASONE

REACTIONS (16)
  - Delirium [Recovering/Resolving]
  - Gastrointestinal disorder [Not Recovered/Not Resolved]
  - Confusional state [Unknown]
  - Diarrhoea [Recovering/Resolving]
  - Retching [Unknown]
  - Abdominal pain [Unknown]
  - Blood potassium decreased [Unknown]
  - Urinary tract infection [Recovering/Resolving]
  - Vomiting [Recovered/Resolved]
  - Nausea [Recovered/Resolved]
  - Asthenia [Recovering/Resolving]
  - Memory impairment [Unknown]
  - Blood magnesium decreased [Unknown]
  - Accidental overdose [Unknown]
  - Malaise [Recovering/Resolving]
  - Fatigue [Unknown]

NARRATIVE: CASE EVENT DATE: 20230107
